FAERS Safety Report 16713039 (Version 4)
Quarter: 2019Q3

REPORT INFORMATION
  Report Type: Spontaneous
  Country: GB (occurrence: GB)
  Receive Date: 20190817
  Receipt Date: 20190924
  Transmission Date: 20191004
  Serious: Yes (Hospitalization, Other)
  Sender: FDA-Public Use
  Company Number: GB-AUROBINDO-AUR-APL-2019-053699

PATIENT
  Age: 45 Year
  Sex: Female

DRUGS (8)
  1. FUROSEMIDE 20 MG [Suspect]
     Active Substance: FUROSEMIDE
     Dosage: 20 MILLIGRAM
     Route: 065
  2. CANDESARTAN TABLETS [Suspect]
     Active Substance: CANDESARTAN
     Indication: CARDIAC FAILURE
     Dosage: UNK
     Route: 048
  3. AMOXICILLIN 500MG [Suspect]
     Active Substance: AMOXICILLIN
     Indication: CARDIAC FAILURE
     Dosage: 500 MILLIGRAM, 3 TIMES A DAY (1500 MILLIGRAM, ONCE A DAY)
     Route: 065
     Dates: start: 20190618
  4. BISOPROLOL 1.25 MG [Suspect]
     Active Substance: BISOPROLOL
     Indication: CARDIAC FAILURE
     Dosage: 1.25 MILLIGRAM, ONCE A DAY
     Route: 065
     Dates: start: 20190618
  5. FUROSEMIDE 20 MG [Suspect]
     Active Substance: FUROSEMIDE
     Indication: CARDIAC FAILURE
     Dosage: 20 MILLIGRAM, ONCE A DAY
     Route: 065
  6. ENTRESTO [Suspect]
     Active Substance: SACUBITRIL\VALSARTAN
     Indication: CARDIAC FAILURE
     Dosage: 50 MILLIGRAM (24/26MG)
     Route: 065
     Dates: start: 20190709
  7. LANSOPRAZOLE. [Suspect]
     Active Substance: LANSOPRAZOLE
     Dosage: 30 MILLIGRAM, ONCE SECOND
     Route: 065
     Dates: start: 20190618
  8. LANSOPRAZOLE. [Suspect]
     Active Substance: LANSOPRAZOLE
     Indication: CARDIAC FAILURE
     Dosage: 30 MILLIGRAM, ONCE A DAY
     Route: 065
     Dates: start: 20190618

REACTIONS (3)
  - Cerebrovascular accident [Unknown]
  - Basilar artery occlusion [Not Recovered/Not Resolved]
  - Contraindicated product administered [Unknown]

NARRATIVE: CASE EVENT DATE: 20190712
